FAERS Safety Report 5076278-0 (Version None)
Quarter: 2006Q3

REPORT INFORMATION
  Report Type: 
  Country: None (occurrence: None)
  Receive Date: 20060807
  Receipt Date: 20060724
  Transmission Date: 20061208
  Serious: Yes (Death, Hospitalization)
  Sender: FDA-Public Use
  Company Number: ZA200607000912

PATIENT
  Age: 40 Year
  Sex: Female

DRUGS (3)
  1. PROZAC [Suspect]
     Indication: MAJOR DEPRESSION
     Dosage: ORAL
     Route: 048
  2. BENZODIAZEPINE DERIVATIVES [Concomitant]
  3. SEREPAX (OXAZEPAM) [Concomitant]

REACTIONS (2)
  - DRUG LEVEL INCREASED [None]
  - INCORRECT DOSE ADMINISTERED [None]
